FAERS Safety Report 11066486 (Version 3)
Quarter: 2015Q2

REPORT INFORMATION
  Report Type: Spontaneous
  Country: US (occurrence: US)
  Receive Date: 20150425
  Receipt Date: 20150615
  Transmission Date: 20150821
  Serious: No
  Sender: FDA-Public Use
  Company Number: US-JNJFOC-20150323645

PATIENT
  Age: 54 Year
  Sex: Female
  Weight: 63.5 kg

DRUGS (6)
  1. SULFASALAZINE. [Concomitant]
     Active Substance: SULFASALAZINE
     Route: 065
  2. REMICADE [Suspect]
     Active Substance: INFLIXIMAB
     Indication: RHEUMATOID ARTHRITIS
     Route: 042
     Dates: start: 20141223, end: 20141223
  3. PLAQUENIL [Concomitant]
     Active Substance: HYDROXYCHLOROQUINE SULFATE
     Route: 065
  4. FALCINIL [Concomitant]
     Route: 065
  5. REMICADE [Suspect]
     Active Substance: INFLIXIMAB
     Indication: RHEUMATOID ARTHRITIS
     Route: 042
     Dates: start: 20141111
  6. METHOTREXATE [Concomitant]
     Active Substance: METHOTREXATE
     Dosage: 3 TABLETS PER WEEK
     Route: 065

REACTIONS (2)
  - Infusion related reaction [Recovered/Resolved]
  - Adverse event [Unknown]

NARRATIVE: CASE EVENT DATE: 20141223
